FAERS Safety Report 6135334-6 (Version None)
Quarter: 2009Q1

REPORT INFORMATION
  Report Type: 
  Country: None (occurrence: None)
  Receive Date: 20090327
  Receipt Date: 20090209
  Transmission Date: 20090719
  Serious: No
  Sender: FDA-Public Use
  Company Number: US-BRISTOL-MYERS SQUIBB COMPANY-14498786

PATIENT

DRUGS (1)
  1. SPRYCEL [Suspect]
     Dosage: 1 DF= 100 UNITS NOT SPECIFIED

REACTIONS (1)
  - TRANSAMINASES INCREASED [None]
